FAERS Safety Report 14610148 (Version 4)
Quarter: 2018Q2

REPORT INFORMATION
  Report Type: Report from Study
  Country: US (occurrence: US)
  Receive Date: 20180307
  Receipt Date: 20180508
  Transmission Date: 20180711
  Serious: Yes (Hospitalization, Other)
  Sender: FDA-Public Use
  Company Number: US-BAYER-2018-043952

PATIENT
  Age: 41 Year
  Sex: Male

DRUGS (4)
  1. ADEMPAS [Suspect]
     Active Substance: RIOCIGUAT
     Indication: PRODUCT USED FOR UNKNOWN INDICATION
     Dosage: UNK
     Route: 065
  2. UPTRAVI [Suspect]
     Active Substance: SELEXIPAG
     Indication: PRODUCT USED FOR UNKNOWN INDICATION
     Dosage: UNK
     Route: 065
     Dates: start: 20180313, end: 20180313
  3. XARELTO [Concomitant]
     Active Substance: RIVAROXABAN
     Dosage: UNK
  4. AMBRISENTAN [Suspect]
     Active Substance: AMBRISENTAN
     Indication: PRODUCT USED FOR UNKNOWN INDICATION
     Dosage: 5 MG, QD
     Route: 065
     Dates: start: 20171227

REACTIONS (13)
  - Sickle cell disease [None]
  - Hepatomegaly [Not Recovered/Not Resolved]
  - Chest discomfort [None]
  - Abdominal pain upper [Not Recovered/Not Resolved]
  - Neck mass [None]
  - Head discomfort [None]
  - Abdominal discomfort [None]
  - Nasopharyngitis [Not Recovered/Not Resolved]
  - Musculoskeletal discomfort [None]
  - Liver function test increased [None]
  - Dyspnoea [None]
  - Chest pain [None]
  - Haemoglobin decreased [None]

NARRATIVE: CASE EVENT DATE: 20180313
